FAERS Safety Report 24287239 (Version 1)
Quarter: 2024Q3

REPORT INFORMATION
  Report Type: Spontaneous
  Country: US (occurrence: None)
  Receive Date: 20240904
  Receipt Date: 20240904
  Transmission Date: 20241017
  Serious: Yes (Hospitalization)
  Sender: Public
  Company Number: None

PATIENT
  Sex: Female
  Weight: 71.4 kg

DRUGS (2)
  1. XELODA [Suspect]
     Active Substance: CAPECITABINE
     Dates: start: 20240610, end: 20240821
  2. TEMOZOLOMIDE [Suspect]
     Active Substance: TEMOZOLOMIDE

REACTIONS (12)
  - Abdominal pain upper [None]
  - Pain [None]
  - Dyspnoea [None]
  - Nausea [None]
  - Discoloured vomit [None]
  - Constipation [None]
  - Asthenia [None]
  - Blood pressure systolic decreased [None]
  - Gallbladder enlargement [None]
  - Gallbladder enlargement [None]
  - Cholecystitis acute [None]
  - Septic shock [None]

NARRATIVE: CASE EVENT DATE: 20240826
